FAERS Safety Report 7626147-4 (Version None)
Quarter: 2011Q3

REPORT INFORMATION
  Report Type: 
  Country: None (occurrence: None)
  Receive Date: 20110721
  Receipt Date: 20110719
  Transmission Date: 20111222
  Serious: Yes (Death, Hospitalization, Other)
  Sender: FDA-Public Use
  Company Number: US-B.I. PHARMACEUTICALS,INC./RIDGEFIELD-2011-BP-12310BP

PATIENT
  Sex: Female

DRUGS (1)
  1. PRADAXA [Suspect]
     Indication: ATRIAL FIBRILLATION
     Dosage: 300 MG
     Route: 048
     Dates: start: 20110405

REACTIONS (6)
  - INTERNATIONAL NORMALISED RATIO [None]
  - CHEST DISCOMFORT [None]
  - ABDOMINAL PAIN [None]
  - DEATH [None]
  - SYNCOPE [None]
  - MEDICAL DEVICE COMPLICATION [None]
